FAERS Safety Report 8608475-9 (Version None)
Quarter: 2012Q3

REPORT INFORMATION
  Report Type: 
  Country: None (occurrence: None)
  Receive Date: 20120808
  Receipt Date: 20120724
  Transmission Date: 20120928
  Serious: Yes (Death)
  Sender: FDA-Public Use
  Company Number: TPA2012A05212

PATIENT
  Age: 80 Year
  Sex: Male

DRUGS (8)
  1. ACETAMINOPHEN [Concomitant]
  2. VERAPAMIL HYDROCHLORIDE [Concomitant]
  3. CARVEDILOL [Concomitant]
  4. FEBURIC (FEBUXOSTAT) [Suspect]
     Indication: GOUT
     Dosage: 10 MG (10 MG, 1 IN 1 D), PER ORAL
     Dates: start: 20120714, end: 20120721
  5. LUPAC (TORASEMIDE) [Concomitant]
  6. CALBLOCK (AZELNIDIPINE) [Concomitant]
  7. MAGLAX (MAGNESIUM OXIDE) [Concomitant]
  8. WARFARIN SODIUM [Concomitant]

REACTIONS (2)
  - CARDIO-RESPIRATORY ARREST [None]
  - HYPERKALAEMIA [None]
